FAERS Safety Report 7820149-0 (Version None)
Quarter: 2011Q4

REPORT INFORMATION
  Report Type: 
  Country: None (occurrence: None)
  Receive Date: 20111018
  Receipt Date: 20111014
  Transmission Date: 20120403
  Serious: Yes (Other)
  Sender: FDA-Public Use
  Company Number: CA-PFIZER INC-2011247633

PATIENT
  Age: 29 Year
  Sex: Male

DRUGS (1)
  1. VARENICLINE TARTRATE [Suspect]
     Dosage: UNK
     Dates: start: 20110901, end: 20111012

REACTIONS (7)
  - SENSORY LOSS [None]
  - APHASIA [None]
  - PALPITATIONS [None]
  - ASTHENIA [None]
  - PRODUCTIVE COUGH [None]
  - HYPOVENTILATION [None]
  - HYPERHIDROSIS [None]
